FAERS Safety Report 9882976 (Version 1)
Quarter: 2014Q1

REPORT INFORMATION
  Report Type: Spontaneous
  Country: US (occurrence: None)
  Receive Date: 20140204
  Receipt Date: 20140204
  Transmission Date: 20141002
  Serious: Yes (Hospitalization)
  Sender: FDA-Public Use
  Company Number: 20140023

PATIENT
  Age: 10 Year
  Sex: Male

DRUGS (4)
  1. VENOFER [Suspect]
     Indication: PRODUCT USED FOR UNKNOWN INDICATION
     Route: 042
     Dates: start: 20120831, end: 20120831
  2. FLAGYL [Suspect]
     Indication: PRODUCT USED FOR UNKNOWN INDICATION
     Dosage: 3D INTRAVENOUS
     Route: 042
     Dates: start: 20120817, end: 20120908
  3. KEPPRA [Suspect]
     Indication: CONVULSION
     Dosage: 2 D
     Route: 048
     Dates: start: 20120821, end: 20120907
  4. CLAFORAN (CEFOTAXIME SODIUM) [Concomitant]

REACTIONS (7)
  - Vomiting [None]
  - Drug reaction with eosinophilia and systemic symptoms [None]
  - Neutropenia [None]
  - Lipase increased [None]
  - White blood cell count decreased [None]
  - Blood calcium decreased [None]
  - Human herpes virus 6 serology positive [None]
